FAERS Safety Report 14506491 (Version 3)
Quarter: 2018Q1

REPORT INFORMATION
  Report Type: Report from Study
  Country: IE (occurrence: IE)
  Receive Date: 20180208
  Receipt Date: 20180309
  Transmission Date: 20180509
  Serious: Yes (Hospitalization)
  Sender: FDA-Public Use
  Company Number: IE-ROCHE-2035257-IND

PATIENT
  Age: 61 Year
  Sex: Male
  Weight: 78 kg

DRUGS (28)
  1. XATRAL [Concomitant]
     Active Substance: ALFUZOSIN
     Route: 048
     Dates: start: 201609
  2. VALOID [Concomitant]
     Active Substance: CYCLIZINE HYDROCHLORIDE
     Route: 048
     Dates: start: 20161026
  3. MST (MORPHINE) [Concomitant]
     Route: 048
     Dates: start: 20171207, end: 20171211
  4. ZOFRAN [Concomitant]
     Active Substance: ONDANSETRON HYDROCHLORIDE
     Route: 048
     Dates: start: 20171225
  5. PARACETAMOL [Concomitant]
     Active Substance: ACETAMINOPHEN
     Route: 048
     Dates: start: 20171123
  6. MST (MORPHINE) [Concomitant]
     Route: 048
     Dates: start: 20171211
  7. FLUCONAZOLE. [Concomitant]
     Active Substance: FLUCONAZOLE
     Route: 048
     Dates: start: 20171221
  8. STEMETIL [Concomitant]
     Active Substance: PROCHLORPERAZINE MALEATE
     Route: 048
     Dates: start: 20171214
  9. INNOHEP [Concomitant]
     Active Substance: TINZAPARIN SODIUM
     Route: 042
     Dates: start: 20170922
  10. ORAMORPH [Concomitant]
     Active Substance: MORPHINE SULFATE
     Route: 048
     Dates: start: 20171123, end: 20171202
  11. CRESTOR [Concomitant]
     Active Substance: ROSUVASTATIN CALCIUM
     Route: 048
     Dates: start: 2006, end: 20171221
  12. LEXAPRO [Concomitant]
     Active Substance: ESCITALOPRAM OXALATE
     Route: 048
     Dates: start: 20170126
  13. NEUROFEN [Concomitant]
     Active Substance: IBUPROFEN
     Route: 048
     Dates: start: 2006
  14. BLINDED IPATASERTIB [Suspect]
     Active Substance: IPATASERTIB
     Indication: HORMONE-REFRACTORY PROSTATE CANCER
     Dosage: ON 30/NOV/2017, AT 09:00, THE PATIENT RECEIVED THE MOST RECENT DOSE OF BLINDED IPATASERTIB PRIOR TO
     Route: 048
     Dates: start: 20171123
  15. ZOLADEX [Concomitant]
     Active Substance: GOSERELIN ACETATE
     Route: 042
     Dates: start: 20161011
  16. SOLPADOL (IRELAND) [Concomitant]
     Route: 048
  17. SEPTRIN [Concomitant]
     Active Substance: SULFAMETHOXAZOLE\TRIMETHOPRIM
     Route: 048
     Dates: start: 20171123
  18. SLOW K [Concomitant]
     Active Substance: POTASSIUM CHLORIDE
     Dosage: 2 OTHER
     Route: 048
     Dates: start: 20171207, end: 20171211
  19. ZOFRAN [Concomitant]
     Active Substance: ONDANSETRON HYDROCHLORIDE
     Route: 042
     Dates: start: 20171225
  20. ABIRATERONE ACETATE. [Suspect]
     Active Substance: ABIRATERONE ACETATE
     Indication: HORMONE-REFRACTORY PROSTATE CANCER
     Dosage: ON 30/NOV/2017, AT 09:00 THE PATIENT RECEIVED THE MOST RECENT DOSE OF ABIRATERONE (1000 MG) PRIOR TO
     Route: 048
     Dates: start: 20171123
  21. STILNOCT [Concomitant]
     Active Substance: ZOLPIDEM TARTRATE
     Route: 048
     Dates: start: 2016
  22. ZOMETA [Concomitant]
     Active Substance: ZOLEDRONIC ACID
     Route: 042
     Dates: start: 20170928
  23. ESOMEPRAZOL [Concomitant]
     Active Substance: ESOMEPRAZOLE
     Route: 048
     Dates: start: 20171123
  24. SENNA [Concomitant]
     Active Substance: SENNA LEAF\SENNOSIDES\SENNOSIDES A AND B
     Route: 048
     Dates: start: 201611
  25. FORTISIP [Concomitant]
     Active Substance: CARBOHYDRATES\FATTY ACIDS\MINERALS\PROTEIN\VITAMINS
     Route: 048
     Dates: start: 201709
  26. ORAMORPH [Concomitant]
     Active Substance: MORPHINE SULFATE
     Route: 048
     Dates: start: 20171202
  27. MST (MORPHINE) [Concomitant]
     Route: 048
     Dates: start: 20171123, end: 20171207
  28. CO-AMOXICLAV [Concomitant]
     Active Substance: AMOXICILLIN\CLAVULANIC ACID
     Route: 048
     Dates: start: 20171221, end: 20171227

REACTIONS (4)
  - Hypotension [Recovered/Resolved]
  - Fatigue [Not Recovered/Not Resolved]
  - Nausea [Recovered/Resolved]
  - Vomiting [Recovered/Resolved]

NARRATIVE: CASE EVENT DATE: 20171130
